FAERS Safety Report 9065105 (Version 1)
Quarter: 2013Q1

REPORT INFORMATION
  Report Type: Report from Study
  Country: US (occurrence: US)
  Receive Date: 20130130
  Receipt Date: 20130130
  Transmission Date: 20140127
  Serious: No
  Sender: FDA-Public Use
  Company Number: US-ABBOTT-12P-163-0969439-00

PATIENT
  Sex: Female
  Weight: 99.88 kg

DRUGS (9)
  1. HUMIRA 40 MG/0.8 ML PEN [Suspect]
     Indication: RHEUMATOID ARTHRITIS
     Dates: start: 20120610
  2. HUMIRA 40 MG/0.8 ML PEN [Suspect]
  3. ALLEGRA [Concomitant]
     Indication: HYPERSENSITIVITY
  4. CLARITIN [Concomitant]
     Indication: HYPERSENSITIVITY
  5. FOLIC ACID [Concomitant]
     Indication: RHEUMATOID ARTHRITIS
  6. PLAQUINEL [Concomitant]
     Indication: RHEUMATOID ARTHRITIS
  7. METHOTREXATE [Concomitant]
     Indication: RHEUMATOID ARTHRITIS
  8. PREDNISONE [Concomitant]
     Indication: RHEUMATOID ARTHRITIS
  9. VITAMIN D [Concomitant]
     Indication: VITAMIN SUPPLEMENTATION

REACTIONS (2)
  - Cough [Not Recovered/Not Resolved]
  - Respiratory tract infection [Not Recovered/Not Resolved]
